FAERS Safety Report 6515139-4 (Version None)
Quarter: 2009Q4

REPORT INFORMATION
  Report Type: 
  Country: None (occurrence: None)
  Receive Date: 20091223
  Receipt Date: 20091216
  Transmission Date: 20100525
  Serious: Yes (Other)
  Sender: FDA-Public Use
  Company Number: IT-BAYER-200943243GPV

PATIENT
  Age: 0 Hour
  Sex: Male
  Weight: 1.9 kg

DRUGS (8)
  1. CIPROXIN [Suspect]
     Indication: DRUG USE FOR UNKNOWN INDICATION
     Route: 064
  2. BUSCOPAN [Suspect]
     Indication: DRUG USE FOR UNKNOWN INDICATION
     Route: 064
  3. CONTRAMAL [Suspect]
     Indication: DRUG USE FOR UNKNOWN INDICATION
     Route: 064
  4. TORADOL [Suspect]
     Indication: DRUG USE FOR UNKNOWN INDICATION
     Route: 064
  5. EUTIROX [Suspect]
     Indication: HYPOTHYROIDISM
     Route: 064
  6. ADALAT [Suspect]
     Indication: HYPERTENSION
     Route: 064
  7. METHYLDOPA [Suspect]
     Indication: DRUG USE FOR UNKNOWN INDICATION
     Route: 064
  8. FOLIC ACID [Suspect]
     Indication: DRUG USE FOR UNKNOWN INDICATION
     Route: 065

REACTIONS (3)
  - ANAEMIA [None]
  - HAEMATOLOGY TEST ABNORMAL [None]
  - SMALL FOR DATES BABY [None]
